FAERS Safety Report 9849282 (Version 1)
Quarter: 2013Q4

REPORT INFORMATION
  Report Type: Spontaneous
  Country: US (occurrence: None)
  Receive Date: 20131224
  Receipt Date: 20131224
  Transmission Date: 20140711
  Serious: Yes (Other)
  Sender: FDA-Public Use
  Company Number: PHEH2013US017255

PATIENT
  Sex: 0

DRUGS (1)
  1. CLOZAPINE [Suspect]

REACTIONS (3)
  - Neutrophil count increased [None]
  - White blood cell count increased [None]
  - Pneumonia [None]
